FAERS Safety Report 6686897-3 (Version None)
Quarter: 2010Q2

REPORT INFORMATION
  Report Type: 
  Country: None (occurrence: None)
  Receive Date: 20100416
  Receipt Date: 20100416
  Transmission Date: 20101027
  Serious: Yes (Life-Threatening, Disabling, Other)
  Sender: FDA-Public Use
  Company Number: None

PATIENT
  Age: 73 Year
  Sex: Female
  Weight: 90.7194 kg

DRUGS (1)
  1. DURAGESIC-100 [Suspect]
     Indication: NEUROPATHY PERIPHERAL
     Dosage: 50MG Q 72 HRS RIGHT SHOULDERS SEVERAL YEARS

REACTIONS (13)
  - BLOOD PRESSURE INCREASED [None]
  - DIZZINESS [None]
  - DYSPNOEA [None]
  - DYSSTASIA [None]
  - ERYTHEMA [None]
  - HEADACHE [None]
  - HEART RATE DECREASED [None]
  - NAUSEA [None]
  - PAIN [None]
  - PRODUCT SUBSTITUTION ISSUE [None]
  - PRURITUS [None]
  - RASH [None]
  - RASH PUSTULAR [None]
